FAERS Safety Report 12729775 (Version 1)
Quarter: 2016Q3

REPORT INFORMATION
  Report Type: Spontaneous
  Country: US (occurrence: US)
  Receive Date: 20160909
  Receipt Date: 20160909
  Transmission Date: 20161109
  Serious: Yes (Death)
  Sender: FDA-Public Use
  Company Number: US-RELYPSA-RLY2016002260

PATIENT
  Age: 66 Year
  Sex: Male

DRUGS (14)
  1. VELTASSA [Suspect]
     Active Substance: PATIROMER
     Indication: HYPERKALAEMIA
     Dosage: 8.4 G, QD
     Route: 048
  2. AMLODIPINE BESYLATE. [Concomitant]
     Active Substance: AMLODIPINE BESYLATE
  3. LEXAPRO [Concomitant]
     Active Substance: ESCITALOPRAM OXALATE
  4. TRAZODONE HYDROCHLORIDE. [Concomitant]
     Active Substance: TRAZODONE HYDROCHLORIDE
  5. PROCRIT [Concomitant]
     Active Substance: ERYTHROPOIETIN
  6. ALLOPURINOL. [Concomitant]
     Active Substance: ALLOPURINOL
  7. GABAPENTIN. [Concomitant]
     Active Substance: GABAPENTIN
  8. LANTUS [Concomitant]
     Active Substance: INSULIN GLARGINE
  9. SODIUM BICARBONATE. [Concomitant]
     Active Substance: SODIUM BICARBONATE
  10. FAMOTIDINE. [Concomitant]
     Active Substance: FAMOTIDINE
  11. GLUCAGON. [Concomitant]
     Active Substance: GLUCAGON
  12. HYDRALAZINE HCL [Concomitant]
     Active Substance: HYDRALAZINE HYDROCHLORIDE
  13. LORATADINE. [Concomitant]
     Active Substance: LORATADINE
  14. FLOMAX [Concomitant]
     Active Substance: TAMSULOSIN HYDROCHLORIDE

REACTIONS (1)
  - Death [Fatal]

NARRATIVE: CASE EVENT DATE: 20160829
